FAERS Safety Report 17059432 (Version 1)
Quarter: 2019Q4

REPORT INFORMATION
  Report Type: Spontaneous
  Country: US (occurrence: US)
  Receive Date: 20191121
  Receipt Date: 20191121
  Transmission Date: 20200122
  Serious: Yes (Other)
  Sender: FDA-Public Use
  Company Number: US-BAYER-2019-207109

PATIENT
  Age: 33 Year
  Sex: Female

DRUGS (1)
  1. GADAVIST [Suspect]
     Active Substance: GADOBUTROL
     Dosage: 5 ML, ONCE
     Route: 042
     Dates: start: 20191015, end: 20191015

REACTIONS (1)
  - Seizure [None]

NARRATIVE: CASE EVENT DATE: 20191015
